FAERS Safety Report 9434252 (Version 2)
Quarter: 2014Q1

REPORT INFORMATION
  Report Type: Spontaneous
  Country: IE (occurrence: IE)
  Receive Date: 20130801
  Receipt Date: 20140314
  Transmission Date: 20141002
  Serious: Yes (Hospitalization, Disabling, Other)
  Sender: FDA-Public Use
  Company Number: PHFR2013IE001028

PATIENT
  Age: 29 Year
  Sex: Female

DRUGS (8)
  1. CLOZARIL [Suspect]
     Indication: SCHIZOPHRENIA
     Dosage: UNK
     Route: 048
     Dates: start: 200402
  2. CLOZARIL [Suspect]
     Dosage: UNK UKN, (CLOZARIL TREATMENT WAS GRADUALLY REDUCED)
     Route: 048
  3. CLOZARIL [Suspect]
     Dosage: UNK
     Route: 048
  4. CLOZARIL [Suspect]
     Dosage: OVERDOSE
     Dates: start: 201106, end: 201106
  5. CLOZARIL [Suspect]
     Dosage: 325 MG, DAILY (DOSE OF CLOZARIL WAS BEING GRADUALLY INCREASED)
     Route: 048
     Dates: start: 20130111, end: 20130131
  6. CLOZARIL [Suspect]
     Dosage: UNK
     Route: 048
  7. SERTRALINE [Concomitant]
     Dosage: UNK
  8. LITHIUM [Concomitant]
     Dosage: UNK

REACTIONS (11)
  - Schizophrenia [Recovering/Resolving]
  - Psychotic disorder [Recovering/Resolving]
  - Depressed mood [Recovering/Resolving]
  - Emotional distress [Recovering/Resolving]
  - Delusional perception [Recovering/Resolving]
  - Overdose [Recovered/Resolved]
  - Neutropenia [Recovered/Resolved]
  - Neutrophil count decreased [Recovered/Resolved]
  - Malaise [Recovering/Resolving]
  - White blood cell count decreased [Recovered/Resolved]
  - Cough [Recovered/Resolved]
